FAERS Safety Report 24187249 (Version 1)
Quarter: 2024Q3

REPORT INFORMATION
  Report Type: Spontaneous
  Country: GB (occurrence: GB)
  Receive Date: 20240808
  Receipt Date: 20240808
  Transmission Date: 20241016
  Serious: Yes (Hospitalization, Other)
  Sender: AUROBINDO
  Company Number: GB-MHRA-31319420

PATIENT
  Age: 5 Year
  Sex: Female
  Weight: 30 kg

DRUGS (1)
  1. MONTELUKAST [Suspect]
     Active Substance: MONTELUKAST SODIUM
     Indication: Asthma
     Dosage: 4 MILLIGRAM, ONCE A DAY (AT NIGHT)
     Route: 065
     Dates: start: 20220404, end: 20240610

REACTIONS (11)
  - Migraine [Recovered/Resolved]
  - Aphasia [Unknown]
  - Confusional state [Unknown]
  - Visual impairment [Unknown]
  - Hallucination [Unknown]
  - Mood swings [Unknown]
  - Irritability [Unknown]
  - Headache [Unknown]
  - Sleep disorder [Unknown]
  - Sleep terror [Unknown]
  - Vomiting [Unknown]

NARRATIVE: CASE EVENT DATE: 20220721
